FAERS Safety Report 5114805-5 (Version None)
Quarter: 2006Q3

REPORT INFORMATION
  Report Type: 
  Country: None (occurrence: None)
  Receive Date: 20060922
  Receipt Date: 20060922
  Transmission Date: 20061208
  Serious: Yes (Other)
  Sender: FDA-Public Use
  Company Number: None

PATIENT
  Sex: Male
  Weight: 99.79 kg

DRUGS (2)
  1. VANCOMYCIN [Suspect]
     Indication: CELLULITIS
     Dosage: 1G AND 1.5G   Q12H   IV
     Route: 042
     Dates: start: 20060905, end: 20060908
  2. CLINDAMYCIN    600MG    HOSPIRA [Suspect]
     Indication: CELLULITIS
     Dosage: 900MG   Q8H   IV
     Route: 042
     Dates: start: 20060905, end: 20060908

REACTIONS (6)
  - ADVERSE DRUG REACTION [None]
  - DERMATITIS BULLOUS [None]
  - INFLAMMATION [None]
  - PURPURA [None]
  - RHEUMATOID FACTOR INCREASED [None]
  - SKIN BURNING SENSATION [None]
